FAERS Safety Report 10040885 (Version 4)
Quarter: 2014Q3

REPORT INFORMATION
  Report Type: Spontaneous
  Country: US (occurrence: US)
  Receive Date: 20140327
  Receipt Date: 20140820
  Transmission Date: 20150326
  Serious: No
  Sender: FDA-Public Use
  Company Number: US-PFIZER INC-2014083425

PATIENT
  Age: 63 Year
  Sex: Female
  Weight: 81.63 kg

DRUGS (6)
  1. LYRICA [Suspect]
     Active Substance: PREGABALIN
     Indication: NEURALGIA
     Dosage: 2X/DAY (ONE IN THE MORNING AND TWO AT NIGHT)
     Route: 048
     Dates: end: 2014
  2. MORPHINE [Concomitant]
     Active Substance: MORPHINE
     Indication: PAIN
     Dosage: UNK
  3. ACETAMINOPHEN/HYDROCODONE [Concomitant]
     Active Substance: ACETAMINOPHEN\HYDROCODONE
     Dosage: UNK
  4. LYRICA [Suspect]
     Active Substance: PREGABALIN
     Indication: NEUROPATHY PERIPHERAL
  5. LYRICA [Suspect]
     Active Substance: PREGABALIN
     Indication: FIBROMYALGIA
  6. HYDROCODONE [Concomitant]
     Active Substance: HYDROCODONE
     Indication: PAIN
     Dosage: 325 MG, AS NEEDED

REACTIONS (4)
  - Pain [Unknown]
  - Neuralgia [Unknown]
  - Pain in extremity [Unknown]
  - Burning sensation [Unknown]

NARRATIVE: CASE EVENT DATE: 2014
